FAERS Safety Report 22001764 (Version 5)
Quarter: 2023Q2

REPORT INFORMATION
  Report Type: Report from Study
  Country: TH (occurrence: TH)
  Receive Date: 20230216
  Receipt Date: 20230427
  Transmission Date: 20230722
  Serious: Yes (Hospitalization)
  Sender: FDA-Public Use
  Company Number: TH-JNJFOC-20230209627

PATIENT
  Age: 53 Year
  Sex: Female
  Weight: 53 kg

DRUGS (16)
  1. AMIVANTAMAB [Suspect]
     Active Substance: AMIVANTAMAB
     Indication: Non-small cell lung cancer
     Route: 058
     Dates: start: 20230201, end: 20230201
  2. FOLIC ACID [Concomitant]
     Active Substance: FOLIC ACID
     Indication: Thalassaemia
     Route: 048
     Dates: start: 20090101
  3. LORATADINE [Concomitant]
     Active Substance: LORATADINE
     Indication: Rhinitis allergic
     Route: 048
     Dates: start: 20220607
  4. NASONEX [Concomitant]
     Active Substance: MOMETASONE FUROATE
     Indication: Rhinitis allergic
     Route: 045
     Dates: start: 20220607
  5. PREGABALIN [Concomitant]
     Active Substance: PREGABALIN
     Indication: Non-small cell lung cancer
     Route: 048
     Dates: start: 20221108
  6. TRAMADOL [Concomitant]
     Active Substance: TRAMADOL
     Indication: Non-small cell lung cancer
     Route: 048
     Dates: start: 20221124
  7. LANSOPRAZOLE [Concomitant]
     Active Substance: LANSOPRAZOLE
     Indication: Gastrooesophageal reflux disease
     Route: 048
     Dates: start: 20221221
  8. CODEINE;GLYCERYL GUAIACOLATE [Concomitant]
     Indication: Non-small cell lung cancer
     Dosage: REPORTED AS CODEPECT (CODEINE 10 MG + GLYCERYL GUAIACOLATE 100 MG)
     Route: 048
     Dates: start: 20230113
  9. DOMPERIDONE [Concomitant]
     Active Substance: DOMPERIDONE
     Indication: Gastrooesophageal reflux disease
     Route: 048
     Dates: start: 20210130
  10. ARCOXIA [Concomitant]
     Active Substance: ETORICOXIB
     Indication: Non-small cell lung cancer
     Route: 048
     Dates: start: 20230130
  11. MIDAZOLAM [Concomitant]
     Active Substance: MIDAZOLAM
     Indication: Echocardiogram
     Route: 042
     Dates: start: 20230130, end: 20230130
  12. DOXYCYCLINE [Concomitant]
     Active Substance: DOXYCYCLINE
     Indication: Prophylaxis
     Route: 048
     Dates: start: 20230201, end: 20230329
  13. UREA [Concomitant]
     Active Substance: UREA
     Indication: Prophylaxis
     Route: 061
     Dates: start: 20230201, end: 20230410
  14. UREA [Concomitant]
     Active Substance: UREA
     Indication: Rash
     Route: 061
     Dates: start: 20230201
  15. METOCLOPRAMIDE [Concomitant]
     Active Substance: METOCLOPRAMIDE
     Indication: Prophylaxis
     Route: 048
     Dates: start: 20230201
  16. LOPERAMIDE [Concomitant]
     Active Substance: LOPERAMIDE
     Indication: Prophylaxis
     Route: 048
     Dates: start: 20230201

REACTIONS (2)
  - Gastritis [Recovering/Resolving]
  - Fatigue [Recovering/Resolving]

NARRATIVE: CASE EVENT DATE: 20230203
